FAERS Safety Report 20279816 (Version 2)
Quarter: 2025Q1

REPORT INFORMATION
  Report Type: Report from Study
  Country: US (occurrence: US)
  Receive Date: 20220103
  Receipt Date: 20250320
  Transmission Date: 20250409
  Serious: Yes (Hospitalization)
  Sender: TAKEDA
  Company Number: US-TAKEDA-2022TUS000038

PATIENT
  Age: 36 Year
  Sex: Female

DRUGS (17)
  1. TEDUGLUTIDE [Suspect]
     Active Substance: TEDUGLUTIDE
     Indication: Short-bowel syndrome
     Dosage: 1 MILLIGRAM, QD
     Dates: start: 20210128, end: 20210503
  2. TEDUGLUTIDE [Suspect]
     Active Substance: TEDUGLUTIDE
     Dosage: 3 MILLIGRAM, QD
     Dates: start: 20210505, end: 20211222
  3. TEDUGLUTIDE [Suspect]
     Active Substance: TEDUGLUTIDE
     Dosage: 3 MILLIGRAM, QD
     Dates: start: 20211227
  4. TEDUGLUTIDE [Suspect]
     Active Substance: TEDUGLUTIDE
  5. TECHNETIUM TC-99M [Concomitant]
     Active Substance: TECHNETIUM TC-99M
     Indication: Imaging procedure
     Dosage: 5.9 MILLICURIE, SINGLE
     Dates: start: 20210717, end: 20210717
  6. CHOLECALCIFEROL [Concomitant]
     Active Substance: CHOLECALCIFEROL
     Indication: Hypovitaminosis
     Dosage: 5000 INTERNATIONAL UNIT, QD
     Dates: start: 20170803
  7. CYANOCOBALAMIN [Concomitant]
     Active Substance: CYANOCOBALAMIN
     Indication: Hypovitaminosis
     Dosage: 1000 MICROGRAM, QD
     Dates: start: 20160726
  8. Glutasolve [Concomitant]
     Indication: Malnutrition
     Dosage: 15 GRAM, BID
     Dates: start: 20180919
  9. GUAR GUM [Concomitant]
     Active Substance: GUAR GUM
     Indication: Malabsorption
     Dosage: 1 INTERNATIONAL UNIT, QID
     Dates: start: 20180919
  10. VITAMIN A [Concomitant]
     Active Substance: VITAMIN A
     Indication: Mineral deficiency
     Dosage: 3 MILLIGRAM, QD
     Dates: start: 20200813
  11. LEVAQUIN [Concomitant]
     Active Substance: LEVOFLOXACIN
     Indication: Klebsiella urinary tract infection
     Dosage: 500 MILLIGRAM, QD
     Dates: start: 20200825
  12. POTASSIUM CHLORIDE [Concomitant]
     Active Substance: POTASSIUM CHLORIDE
     Indication: Hypokalaemia
     Dosage: 10 MILLIEQUIVALENT, SINGLE
     Dates: start: 20200825
  13. HALOPERIDOL [Concomitant]
     Active Substance: HALOPERIDOL
     Indication: Psychotic disorder
     Dosage: 5 MILLIGRAM, Q6HR
     Dates: start: 20200901
  14. RISPERIDONE [Concomitant]
     Active Substance: RISPERIDONE
     Indication: Psychotic disorder
     Dosage: 1 MILLIGRAM, BID
     Dates: start: 20200901
  15. GLUTAMINE [Concomitant]
     Active Substance: GLUTAMINE
     Indication: Hypovitaminosis
     Dosage: 15 GRAM, BID
     Dates: start: 20210503
  16. GLUTAMINE [Concomitant]
     Active Substance: GLUTAMINE
     Indication: Mineral deficiency
  17. LOPERAMIDE [Concomitant]
     Active Substance: LOPERAMIDE
     Indication: Diarrhoea
     Dosage: 2 MILLIGRAM, QD
     Dates: start: 20201104, end: 20210717

REACTIONS (1)
  - Leukocytosis [Recovered/Resolved]

NARRATIVE: CASE EVENT DATE: 20210717
